FAERS Safety Report 24152143 (Version 1)
Quarter: 2024Q3

REPORT INFORMATION
  Report Type: Report from Study
  Country: US (occurrence: US)
  Receive Date: 20240730
  Receipt Date: 20240730
  Transmission Date: 20241017
  Serious: Yes (Hospitalization)
  Sender: ABBVIE
  Company Number: US-ABBVIE-5854090

PATIENT
  Sex: Female

DRUGS (4)
  1. SKYRIZI [Suspect]
     Active Substance: RISANKIZUMAB-RZAA
     Indication: Psoriatic arthropathy
     Dosage: WEEK 0 START OF THERAPY (10/2023 OR 11/2023)?STRENGTH: 150MG/ML
     Route: 058
     Dates: start: 202310, end: 202310
  2. SKYRIZI [Suspect]
     Active Substance: RISANKIZUMAB-RZAA
     Dosage: WEEK 4 ?STRENGTH: 150MG/ML
     Route: 058
     Dates: start: 2023, end: 2023
  3. SKYRIZI [Suspect]
     Active Substance: RISANKIZUMAB-RZAA
     Dosage: STRENGTH: 150MG/ML
     Route: 058
  4. SKYRIZI [Suspect]
     Active Substance: RISANKIZUMAB-RZAA
     Dosage: RESTARTED SKYRIZI ON 04/2024 OR 05/2024?STRENGTH: 150MG/ML
     Route: 058
     Dates: start: 202404

REACTIONS (2)
  - Paralysis [Unknown]
  - Spinal cord disorder [Unknown]
